FAERS Safety Report 6502647-5 (Version None)
Quarter: 2009Q4

REPORT INFORMATION
  Report Type: 
  Country: None (occurrence: None)
  Receive Date: 20091217
  Receipt Date: 20091208
  Transmission Date: 20100525
  Serious: Yes (Hospitalization)
  Sender: FDA-Public Use
  Company Number: US-JNJFOC-20091103162

PATIENT
  Sex: Male
  Weight: 96.16 kg

DRUGS (2)
  1. REMICADE [Suspect]
     Indication: COLITIS ULCERATIVE
     Route: 042
     Dates: start: 20051010, end: 20090902
  2. IMURAN [Concomitant]
     Indication: COLITIS ULCERATIVE

REACTIONS (2)
  - ACUTE PULMONARY HISTOPLASMOSIS [None]
  - ANAL ABSCESS [None]
